FAERS Safety Report 12458825 (Version 1)
Quarter: 2016Q2

REPORT INFORMATION
  Report Type: Spontaneous
  Country: US (occurrence: None)
  Receive Date: 20160610
  Receipt Date: 20160610
  Transmission Date: 20160815
  Serious: No
  Sender: FDA-Public Use
  Company Number: None

PATIENT
  Age: 49 Year
  Sex: Female

DRUGS (1)
  1. HARVONI [Suspect]
     Active Substance: LEDIPASVIR\SOFOSBUVIR
     Indication: HEPATITIS C

REACTIONS (6)
  - Pruritus [None]
  - Scratch [None]
  - Dry skin [None]
  - Carpal tunnel syndrome [None]
  - Scab [None]
  - Condition aggravated [None]

NARRATIVE: CASE EVENT DATE: 20160608
